FAERS Safety Report 16016650 (Version 1)
Quarter: 2019Q1

REPORT INFORMATION
  Report Type: Spontaneous
  Country: US (occurrence: US)
  Receive Date: 20190228
  Receipt Date: 20190228
  Transmission Date: 20190418
  Serious: Yes (Hospitalization)
  Sender: FDA-Public Use
  Company Number: US-ELI_LILLY_AND_COMPANY-US201902010550

PATIENT
  Age: 11 Year
  Sex: Male

DRUGS (3)
  1. LANTUS [Concomitant]
     Active Substance: INSULIN GLARGINE
     Indication: BLOOD GLUCOSE INCREASED
     Dosage: UNK, UNKNOWN
     Route: 065
     Dates: start: 201812
  2. HUMALOG [Suspect]
     Active Substance: INSULIN LISPRO
     Dosage: UNK, PRN (SLIDING SCALE)
     Route: 065
  3. HUMALOG [Suspect]
     Active Substance: INSULIN LISPRO
     Indication: TYPE 1 DIABETES MELLITUS
     Dosage: UNK, PRN (SLIDING SCALE)
     Route: 065
     Dates: start: 201805

REACTIONS (7)
  - Blood glucose increased [Unknown]
  - Blood glucose increased [Recovered/Resolved]
  - Influenza [Unknown]
  - Blood ketone body increased [Recovered/Resolved]
  - Dehydration [Unknown]
  - Blood glucose increased [Recovered/Resolved]
  - Drug ineffective [Unknown]

NARRATIVE: CASE EVENT DATE: 201812
